FAERS Safety Report 6502995-9 (Version None)
Quarter: 2009Q4

REPORT INFORMATION
  Report Type: 
  Country: None (occurrence: None)
  Receive Date: 20091217
  Receipt Date: 20091204
  Transmission Date: 20100525
  Serious: Yes (Hospitalization, Other)
  Sender: FDA-Public Use
  Company Number: US-ELI_LILLY_AND_COMPANY-US200912001274

PATIENT
  Sex: Female

DRUGS (7)
  1. FORTEO [Suspect]
     Indication: OSTEOPOROSIS
     Dosage: 20 UG, DAILY (1/D)
     Dates: start: 20080501
  2. PREDNISONE [Concomitant]
     Dosage: 4 MG, DAILY (1/D)
  3. ASACOL [Concomitant]
     Dosage: UNK, DAILY (1/D)
  4. AMITRIPTYLINE [Concomitant]
     Dosage: 20 MG, DAILY (1/D)
  5. CALCIUM [Concomitant]
     Dosage: UNK, UNKNOWN
  6. MULTIVITAMIN [Concomitant]
     Dosage: UNK, UNKNOWN
  7. ADVIL PM                           /05810501/ [Concomitant]
     Dosage: UNK, UNKNOWN

REACTIONS (2)
  - FALL [None]
  - HIP FRACTURE [None]
